FAERS Safety Report 14275948 (Version 2)
Quarter: 2018Q1

REPORT INFORMATION
  Report Type: Spontaneous
  Country: RO (occurrence: RO)
  Receive Date: 20171211
  Receipt Date: 20180123
  Transmission Date: 20180508
  Serious: Yes (Other)
  Sender: FDA-Public Use
  Company Number: RO-OTSUKA-2016_002212

PATIENT
  Weight: 3 kg

DRUGS (1)
  1. ABILIFY [Suspect]
     Active Substance: ARIPIPRAZOLE
     Indication: PRODUCT USED FOR UNKNOWN INDICATION
     Dosage: 10 MG, QD (DOSE:UNTIL 4TH MONTH 10MG/D,AFTER 4TH MONTH 5MG/D.INTERRUPTED ONE MONTH BEFORE DELIVERY)
     Route: 064

REACTIONS (2)
  - Foetal exposure during pregnancy [Unknown]
  - Transverse presentation [Unknown]
